FAERS Safety Report 13427527 (Version 1)
Quarter: 2017Q2

REPORT INFORMATION
  Report Type: Spontaneous
  Country: US (occurrence: US)
  Receive Date: 20170411
  Receipt Date: 20170411
  Transmission Date: 20170830
  Serious: Yes (Other)
  Sender: FDA-Public Use
  Company Number: US-GLAXOSMITHKLINE-US2017GSK050340

PATIENT
  Sex: Female

DRUGS (10)
  1. OXYBUTYNIN CHLORIDE. [Concomitant]
     Active Substance: OXYBUTYNIN CHLORIDE
  2. LEVOTHYROXINE SODIUM. [Concomitant]
     Active Substance: LEVOTHYROXINE SODIUM
  3. ONDANSETRON HYDROCHLORIDE. [Concomitant]
     Active Substance: ONDANSETRON HYDROCHLORIDE
  4. TECFIDERA [Suspect]
     Active Substance: DIMETHYL FUMARATE
     Indication: MULTIPLE SCLEROSIS
     Dosage: 240 MG, QD
     Route: 048
     Dates: start: 2014
  5. ARMODAFINIL. [Concomitant]
     Active Substance: ARMODAFINIL
  6. LINZESS [Concomitant]
     Active Substance: LINACLOTIDE
  7. LAMICTAL [Suspect]
     Active Substance: LAMOTRIGINE
     Indication: BIPOLAR DISORDER
     Dosage: 25 MG, U
  8. TOPIRAMATE. [Concomitant]
     Active Substance: TOPIRAMATE
  9. AMPYRA [Suspect]
     Active Substance: DALFAMPRIDINE
     Indication: MULTIPLE SCLEROSIS
     Dosage: 10 MG, BID
     Route: 048
  10. ACETAMINOPHEN AND HYDROCODONE BITARTRATE [Concomitant]

REACTIONS (17)
  - Dysuria [Unknown]
  - Chest pain [Unknown]
  - Pyelonephritis [Not Recovered/Not Resolved]
  - Multiple sclerosis [Unknown]
  - Bipolar disorder [Unknown]
  - Cholelithiasis [Recovered/Resolved]
  - Pain [Recovered/Resolved]
  - Kidney infection [Unknown]
  - Nephrolithiasis [Unknown]
  - Blood potassium decreased [Unknown]
  - Back pain [Unknown]
  - Fibromyalgia [Unknown]
  - Bile duct stone [Unknown]
  - Dyspepsia [Unknown]
  - Narcolepsy [Unknown]
  - Chromaturia [Not Recovered/Not Resolved]
  - Condition aggravated [Unknown]

NARRATIVE: CASE EVENT DATE: 2014
